FAERS Safety Report 5831071-3 (Version None)
Quarter: 2008Q3

REPORT INFORMATION
  Report Type: 
  Country: None (occurrence: None)
  Receive Date: 20080801
  Receipt Date: 20080325
  Transmission Date: 20090109
  Serious: No
  Sender: FDA-Public Use
  Company Number: US-BRISTOL-MYERS SQUIBB COMPANY-14126155

PATIENT
  Age: 68 Year
  Sex: Male
  Weight: 77 kg

DRUGS (6)
  1. COUMADIN [Suspect]
     Indication: PROPHYLAXIS
     Dosage: CURRENT DOSE:3.5MG
  2. LASIX [Concomitant]
  3. COREG [Concomitant]
  4. LISINOPRIL [Concomitant]
  5. CARDIZEM [Concomitant]
  6. ZOCOR [Concomitant]

REACTIONS (2)
  - HYPOGEUSIA [None]
  - HYPOSMIA [None]
